FAERS Safety Report 6595312-X (Version None)
Quarter: 2010Q1

REPORT INFORMATION
  Report Type: 
  Country: None (occurrence: None)
  Receive Date: 20100219
  Receipt Date: 20100219
  Transmission Date: 20100710
  Serious: Yes (Hospitalization)
  Sender: FDA-Public Use
  Company Number: None

PATIENT
  Age: 18 Year
  Sex: Female

DRUGS (1)
  1. MINOCYCLINE HCL [Suspect]
     Indication: ACNE
     Dosage: 100 MG TWICE DAILY PO
     Route: 048
     Dates: start: 20091015, end: 20091128

REACTIONS (8)
  - BENIGN INTRACRANIAL HYPERTENSION [None]
  - DIPLOPIA [None]
  - EYE SWELLING [None]
  - MIGRAINE [None]
  - PAIN [None]
  - PYREXIA [None]
  - VISION BLURRED [None]
  - VOMITING [None]
